FAERS Safety Report 20977941 (Version 4)
Quarter: 2022Q4

REPORT INFORMATION
  Report Type: Report from Study
  Country: US (occurrence: US)
  Receive Date: 20220618
  Receipt Date: 20221111
  Transmission Date: 20230113
  Serious: Yes (Hospitalization)
  Sender: FDA-Public Use
  Company Number: US-TEVA-2022-US-2047243

PATIENT
  Age: 49 Year
  Sex: Female
  Weight: 88 kg

DRUGS (10)
  1. OXALIPLATIN [Suspect]
     Active Substance: OXALIPLATIN
     Indication: Colorectal cancer metastatic
     Dosage: 173 MG EVERY 2 WEEKS
     Route: 065
     Dates: start: 20220503, end: 20220504
  2. OXALIPLATIN [Suspect]
     Active Substance: OXALIPLATIN
     Dosage: 173 MG EVERY 2 WEEKS
     Route: 065
     Dates: start: 20220524
  3. FLUOROURACIL [Suspect]
     Active Substance: FLUOROURACIL
     Indication: Colorectal cancer metastatic
     Dosage: 5710 MG EVERY TWO WEEKS
     Route: 042
     Dates: start: 20220503, end: 20220504
  4. FLUOROURACIL [Suspect]
     Active Substance: FLUOROURACIL
     Dosage: 5710 MG EVERY TWO WEEKS
     Route: 042
     Dates: start: 20220524
  5. LEUCOVORIN CALCIUM [Suspect]
     Active Substance: LEUCOVORIN CALCIUM
     Indication: Colorectal cancer metastatic
     Dosage: 816 MG EVERY 2 WEEKS
     Route: 042
     Dates: start: 20220503, end: 20220504
  6. LEUCOVORIN CALCIUM [Suspect]
     Active Substance: LEUCOVORIN CALCIUM
     Dosage: 816 MG EVERY 2 WEEKS
     Route: 042
     Dates: start: 20220524
  7. CETUXIMAB [Suspect]
     Active Substance: CETUXIMAB
     Indication: Colorectal cancer metastatic
     Dosage: 1020 MG EVERY 2 WEEKS
     Route: 042
     Dates: start: 20220503, end: 20220504
  8. CETUXIMAB [Suspect]
     Active Substance: CETUXIMAB
     Dosage: 1020 MG EVERY 2 WEEKS
     Route: 042
     Dates: start: 20220524
  9. ENCORAFENIB [Suspect]
     Active Substance: ENCORAFENIB
     Indication: Colorectal cancer metastatic
     Dosage: 300 MILLIGRAM DAILY;
     Route: 048
     Dates: start: 20220503, end: 20220504
  10. ENCORAFENIB [Suspect]
     Active Substance: ENCORAFENIB
     Dosage: 300 MILLIGRAM DAILY;
     Route: 048
     Dates: start: 20220511

REACTIONS (3)
  - Pyrexia [Recovered/Resolved]
  - Chills [Recovering/Resolving]
  - Sepsis [Recovering/Resolving]

NARRATIVE: CASE EVENT DATE: 20220504
